FAERS Safety Report 6933800-4 (Version None)
Quarter: 2010Q3

REPORT INFORMATION
  Report Type: 
  Country: None (occurrence: None)
  Receive Date: 20100820
  Receipt Date: 20100811
  Transmission Date: 20110219
  Serious: Yes (Hospitalization, Other)
  Sender: FDA-Public Use
  Company Number: US-PFIZER INC-2010101381

PATIENT
  Sex: Female
  Weight: 74.4 kg

DRUGS (6)
  1. CADUET [Suspect]
     Indication: BLOOD CHOLESTEROL INCREASED
     Dosage: 5MG/40MG ONCE DAILY
     Route: 048
  2. CADUET [Suspect]
     Indication: HYPERTENSION
  3. ATENOLOL [Concomitant]
     Indication: HYPERTENSION
     Dosage: 50 MG, 1X/DAY
     Route: 048
  4. CARISOPRODOL [Concomitant]
     Indication: SLEEP DISORDER
     Dosage: 350 MG, 1X/DAY
     Route: 048
  5. LORTAB [Concomitant]
     Indication: PAIN
     Dosage: 10/500
     Route: 048
  6. ALPRAZOLAM [Concomitant]
     Indication: PANIC ATTACK
     Dosage: 2 MG, 4X/DAY
     Route: 048

REACTIONS (4)
  - BLOOD TRIGLYCERIDES INCREASED [None]
  - HEPATOMEGALY [None]
  - PERIPHERAL VASCULAR DISORDER [None]
  - VASCULAR GRAFT [None]
